FAERS Safety Report 8287286-0 (Version None)
Quarter: 2012Q2

REPORT INFORMATION
  Report Type: 
  Country: None (occurrence: None)
  Receive Date: 20120416
  Receipt Date: 20120416
  Transmission Date: 20120825
  Serious: Yes (Life-Threatening)
  Sender: FDA-Public Use
  Company Number: None

PATIENT
  Age: 70 Year
  Sex: Male
  Weight: 80.285 kg

DRUGS (1)
  1. ATOVAQUONE/PROGUANIL HYDROCHLORIDE [Suspect]
     Indication: MALARIA PROPHYLAXIS
     Dosage: 1 TAB
     Route: 048
     Dates: start: 20120307, end: 20120327

REACTIONS (5)
  - RASH PRURITIC [None]
  - SWELLING FACE [None]
  - OBSTRUCTIVE AIRWAYS DISORDER [None]
  - PHARYNGEAL OEDEMA [None]
  - URTICARIA [None]
